FAERS Safety Report 23601149 (Version 1)
Quarter: 2024Q1

REPORT INFORMATION
  Report Type: Spontaneous
  Country: IN (occurrence: IN)
  Receive Date: 20240306
  Receipt Date: 20240306
  Transmission Date: 20240410
  Serious: Yes (Death)
  Sender: FDA-Public Use
  Company Number: IN-PFIZER INC-2019411346

PATIENT
  Age: 67 Year
  Sex: Female

DRUGS (4)
  1. PALBOCICLIB [Suspect]
     Active Substance: PALBOCICLIB
     Indication: Breast cancer metastatic
     Dosage: UNK
     Route: 048
     Dates: start: 201707
  2. PALBOCICLIB [Suspect]
     Active Substance: PALBOCICLIB
     Dosage: 125 MG, CYCLIC (1-0-0 X 3 WEEKS ON THEN 1 WEEK OFF)
     Route: 048
     Dates: start: 20180308
  3. PALBOCICLIB [Suspect]
     Active Substance: PALBOCICLIB
     Dosage: 125 MG
     Route: 048
  4. LETROZOLE [Concomitant]
     Active Substance: LETROZOLE
     Indication: Breast cancer metastatic
     Dosage: 2.5 MG, 1X/DAY (0-0-1 X 28 DAYS)

REACTIONS (2)
  - Death [Fatal]
  - Haemoglobin decreased [Unknown]
